FAERS Safety Report 9977147 (Version 1)
Quarter: 2014Q1

REPORT INFORMATION
  Report Type: Report from Study
  Country: US (occurrence: US)
  Receive Date: 20140306
  Receipt Date: 20140306
  Transmission Date: 20141002
  Serious: No
  Sender: FDA-Public Use
  Company Number: US-ABBVIE-13P-163-1167067-00

PATIENT
  Age: 52 Year
  Sex: Female

DRUGS (10)
  1. HUMIRA [Suspect]
     Indication: CROHN^S DISEASE
     Dosage: STARTING DOSE
     Dates: start: 20130817, end: 20130817
  2. HUMIRA [Suspect]
     Dates: start: 20130831, end: 20130831
  3. HUMIRA [Suspect]
  4. ASACOL HD [Concomitant]
     Indication: CROHN^S DISEASE
  5. LEVOTHYROXINE [Concomitant]
     Indication: HYPOTHYROIDISM
     Dosage: 100MCG DAILY
  6. CYMBALTA [Concomitant]
     Indication: DEPRESSION
     Dosage: 120MG DAILY
  7. LYRICA [Concomitant]
     Indication: ANXIETY
  8. XANAX [Concomitant]
     Indication: ANXIETY
  9. LUNESTA [Concomitant]
     Indication: INSOMNIA
     Dosage: AT HOUR OF SLEEP
  10. MULTIVITAMIN [Concomitant]
     Indication: PRODUCT USED FOR UNKNOWN INDICATION
     Dosage: DAILY

REACTIONS (3)
  - Injection site erythema [Not Recovered/Not Resolved]
  - Injection site pruritus [Not Recovered/Not Resolved]
  - Injection site induration [Not Recovered/Not Resolved]
